FAERS Safety Report 21484742 (Version 2)
Quarter: 2023Q1

REPORT INFORMATION
  Report Type: Spontaneous
  Country: GB (occurrence: None)
  Receive Date: 20221020
  Receipt Date: 20230107
  Transmission Date: 20230418
  Serious: Yes (Life-Threatening, Hospitalization)
  Sender: FDA-Public Use
  Company Number: GB-MHRA-MED-202210150944432820-BVQHL

PATIENT
  Age: 66 Year
  Sex: Female
  Weight: 59 kg

DRUGS (1)
  1. ATORVASTATIN [Suspect]
     Active Substance: ATORVASTATIN
     Indication: Blood cholesterol increased
     Dates: end: 20220613

REACTIONS (8)
  - Weight decreased [Recovering/Resolving]
  - Feeding disorder [Recovered/Resolved]
  - Bile output [Recovered/Resolved]
  - Chromaturia [Recovered/Resolved]
  - Jaundice [Recovered/Resolved]
  - Liver function test increased [Recovering/Resolving]
  - Autoimmune hepatitis [Recovering/Resolving]
  - Medication error [Unknown]

NARRATIVE: CASE EVENT DATE: 20220613
